FAERS Safety Report 23710479 (Version 2)
Quarter: 2024Q2

REPORT INFORMATION
  Report Type: Spontaneous
  Country: JP (occurrence: JP)
  Receive Date: 20240405
  Receipt Date: 20240531
  Transmission Date: 20240716
  Serious: Yes (Death, Other)
  Sender: FDA-Public Use
  Company Number: JP-ONO-2024JP001848

PATIENT
  Age: 9 Decade

DRUGS (3)
  1. KYPROLIS [Suspect]
     Active Substance: CARFILZOMIB
     Indication: Plasma cell myeloma
     Dosage: UNK UNK, QWK (UNK, QW (LOW DOSE)
     Route: 041
     Dates: start: 20231206
  2. KYPROLIS [Suspect]
     Active Substance: CARFILZOMIB
     Dosage: UNK UNK, QWK (UNK, QW (LOW DOSE)
     Route: 065
     Dates: end: 20240306
  3. DEXAMETHASONE [Concomitant]
     Active Substance: DEXAMETHASONE
     Indication: Plasma cell myeloma
     Dosage: UNK (UNK)
     Route: 065
     Dates: start: 20231206

REACTIONS (4)
  - Sudden death [Fatal]
  - Myocardial infarction [Fatal]
  - Upper respiratory tract inflammation [Recovered/Resolved]
  - Malaise [Not Recovered/Not Resolved]

NARRATIVE: CASE EVENT DATE: 20240112
